FAERS Safety Report 17145712 (Version 1)
Quarter: 2019Q4

REPORT INFORMATION
  Report Type: Spontaneous
  Country: DE (occurrence: DE)
  Receive Date: 20191212
  Receipt Date: 20191212
  Transmission Date: 20200122
  Serious: Yes (Other)
  Sender: FDA-Public Use
  Company Number: DE-DRREDDYS-GER/GER/19/0116914

PATIENT
  Age: 67 Year
  Sex: Female

DRUGS (1)
  1. VENLAFAXIN BETA RETARD 75 MG HARTKAPSELN, RETARDIERT [Suspect]
     Active Substance: VENLAFAXINE HYDROCHLORIDE
     Indication: PRODUCT USED FOR UNKNOWN INDICATION

REACTIONS (5)
  - Headache [Unknown]
  - Nervous system disorder [Unknown]
  - Respiratory distress [Unknown]
  - Panic attack [Unknown]
  - Anxiety [Unknown]
